FAERS Safety Report 8170306-1 (Version None)
Quarter: 2012Q1

REPORT INFORMATION
  Report Type: 
  Country: None (occurrence: None)
  Receive Date: 20120228
  Receipt Date: 20120224
  Transmission Date: 20120608
  Serious: Yes (Life-Threatening, Hospitalization, Other)
  Sender: FDA-Public Use
  Company Number: PHHO2012NL003333

PATIENT
  Sex: Male
  Weight: 85 kg

DRUGS (2)
  1. MYCOPHENOLIC ACID [Suspect]
     Indication: STEM CELL TRANSPLANT
     Dosage: 1080 MG, UNK
     Route: 048
     Dates: start: 20120216
  2. SANDIMMUNE [Suspect]
     Indication: STEM CELL TRANSPLANT
     Dosage: 130 MG, UNK
     Route: 042
     Dates: start: 20120213

REACTIONS (2)
  - RESPIRATORY FAILURE [None]
  - PNEUMONIA [None]
